FAERS Safety Report 8879579 (Version 2)
Quarter: 2013Q2

REPORT INFORMATION
  Report Type: Spontaneous
  Country: JP (occurrence: JP)
  Receive Date: 20121101
  Receipt Date: 20130403
  Transmission Date: 20140414
  Serious: Yes (Hospitalization)
  Sender: FDA-Public Use
  Company Number: JP-ASTELLAS-2012JP010159

PATIENT
  Sex: Female
  Weight: 59 kg

DRUGS (6)
  1. PROGRAF [Suspect]
     Indication: RHEUMATOID ARTHRITIS
     Dosage: 1 MG, UID/QD
     Route: 048
     Dates: start: 20120605
  2. RHEUMATREX /00113801/ [Suspect]
     Indication: RHEUMATOID ARTHRITIS
     Dosage: 4 MG, UID/QD
     Route: 048
     Dates: start: 20100415, end: 20110527
  3. RHEUMATREX /00113801/ [Suspect]
     Dosage: 8 MG, UID/QD
     Route: 048
     Dates: start: 20120409, end: 20120709
  4. RHEUMATREX /00113801/ [Suspect]
     Dosage: 10 MG, UID/QD
     Route: 048
     Dates: start: 20120710
  5. METOLATE [Suspect]
     Indication: RHEUMATOID ARTHRITIS
     Dosage: 6 MG, UID/QD
     Route: 048
     Dates: start: 20110528, end: 20120226
  6. METOLATE [Suspect]
     Dosage: 8 MG, UID/QD
     Route: 048
     Dates: start: 20120227, end: 20120408

REACTIONS (2)
  - Intentional drug misuse [Unknown]
  - Cholecystitis [Recovering/Resolving]
